FAERS Safety Report 21875520 (Version 1)
Quarter: 2023Q1

REPORT INFORMATION
  Report Type: Spontaneous
  Country: DE (occurrence: DE)
  Receive Date: 20230118
  Receipt Date: 20230118
  Transmission Date: 20230417
  Serious: Yes (Hospitalization, Other)
  Sender: FDA-Public Use
  Company Number: DE-AMK-262190

PATIENT
  Age: 72 Year
  Sex: Female
  Weight: 63 kg

DRUGS (9)
  1. PANTOPRAZOLE [Suspect]
     Active Substance: PANTOPRAZOLE
     Indication: Gastrooesophageal reflux disease
     Dosage: 40 MILLIGRAM, DAILY
     Route: 048
  2. METHOTREXATE SODIUM [Suspect]
     Active Substance: METHOTREXATE SODIUM
     Indication: Rheumatoid arthritis
     Dosage: 15 MILLIGRAM, 1/WEEK
     Route: 048
     Dates: end: 20221202
  3. Candesartan ratiopharm 8mg [Concomitant]
     Indication: Hypertension
     Dosage: 8 MILLIGRAM, BID
     Route: 048
     Dates: end: 20221202
  4. APIXABAN [Concomitant]
     Active Substance: APIXABAN
     Indication: Hip arthroplasty
     Dosage: 2.5 MILLIGRAM, BID
     Route: 048
  5. l-thyroxine 50 henning [Concomitant]
     Indication: Hypothyroidism
     Dosage: 50 MCG, DAILY
     Route: 048
  6. MetoHEXAL Succ 23.75 mg prolonged-release tablets [Concomitant]
     Indication: Hypertension
     Dosage: 23.75 MILLIGRAM, BID
     Route: 048
  7. Prednisolone 5 mg JENAPHARM [Concomitant]
     Indication: Rheumatoid arthritis
     Dosage: 2.5 MILLIGRAM, BID
     Route: 048
  8. FOLIC ACID [Concomitant]
     Active Substance: FOLIC ACID
     Indication: Folate deficiency
     Dosage: 5 MILLIGRAM, DAILY
     Route: 048
  9. FERROUS GLYCINE SULFATE [Concomitant]
     Active Substance: FERROUS GLYCINE SULFATE
     Indication: Product used for unknown indication
     Dosage: 1 DOSAGE FORM, DAILY
     Route: 048
     Dates: start: 20221125, end: 20221202

REACTIONS (4)
  - Pharyngitis [Unknown]
  - Pancytopenia [Recovering/Resolving]
  - Aphthous ulcer [Recovering/Resolving]
  - Off label use [Unknown]

NARRATIVE: CASE EVENT DATE: 20221202
